FAERS Safety Report 22114289 (Version 3)
Quarter: 2023Q2

REPORT INFORMATION
  Report Type: Spontaneous
  Country: US (occurrence: US)
  Receive Date: 20230320
  Receipt Date: 20230407
  Transmission Date: 20230722
  Serious: No
  Sender: FDA-Public Use
  Company Number: US-ELI_LILLY_AND_COMPANY-US202303008723

PATIENT
  Age: 55 Year
  Sex: Female

DRUGS (5)
  1. MOUNJARO [Suspect]
     Active Substance: TIRZEPATIDE
     Indication: Product used for unknown indication
     Dosage: 10 MG, UNKNOWN
     Route: 065
  2. MOUNJARO [Suspect]
     Active Substance: TIRZEPATIDE
     Dosage: 12.5 MG, UNKNOWN
     Route: 065
  3. VITAMINS [Concomitant]
     Active Substance: VITAMINS
     Indication: Metabolic surgery
     Dosage: UNK UNK, DAILY
     Route: 065
  4. B12 1000 SR [Concomitant]
     Indication: Product used for unknown indication
     Dosage: 5000 UG, DAILY
     Route: 065
  5. LIQUACEL [Concomitant]
     Indication: Metabolic surgery

REACTIONS (7)
  - Blood glucose abnormal [Unknown]
  - Injection site reaction [Recovered/Resolved]
  - Injection site hypersensitivity [Recovered/Resolved]
  - Injection site irritation [Not Recovered/Not Resolved]
  - Injection site mass [Recovered/Resolved]
  - Injection site warmth [Recovered/Resolved]
  - Injection site erythema [Recovered/Resolved]

NARRATIVE: CASE EVENT DATE: 20230330
